FAERS Safety Report 4818678-7 (Version None)
Quarter: 2005Q4

REPORT INFORMATION
  Report Type: 
  Country: None (occurrence: None)
  Receive Date: 20051101
  Receipt Date: 20051025
  Transmission Date: 20060501
  Serious: Yes (Other)
  Sender: FDA-Public Use
  Company Number: 2005AL004310

PATIENT
  Age: 19 Year
  Sex: Female
  Weight: 50 kg

DRUGS (11)
  1. PHENYTOIN [Suspect]
     Indication: CONVULSION
     Dosage: 700 MG; QD
  2. CYCLOSPORINE [Suspect]
     Dosage: BID
  3. TRACROLIMUS [Suspect]
     Dosage: BID
  4. MYCOPHENOLATE MOFETIL [Concomitant]
  5. METHYLPREDNISOLONE [Concomitant]
  6. SERTRALINE HCL [Concomitant]
  7. LISINOPRIL [Concomitant]
  8. MEGESTROL [Concomitant]
  9. LANSOPRAZOLE [Concomitant]
  10. MULTI-VIT [Concomitant]
  11. CALCIUM ACETATE [Concomitant]

REACTIONS (9)
  - BLOOD CREATINE INCREASED [None]
  - BLOOD CREATININE INCREASED [None]
  - BLOOD PRESSURE INCREASED [None]
  - DRUG INTERACTION [None]
  - DRUG RESISTANCE [None]
  - FUNGAEMIA [None]
  - KIDNEY TRANSPLANT REJECTION [None]
  - PHARMACEUTICAL PRODUCT COMPLAINT [None]
  - PNEUMONIA [None]
